FAERS Safety Report 13883054 (Version 2)
Quarter: 2017Q3

REPORT INFORMATION
  Report Type: Spontaneous
  Country: JP (occurrence: JP)
  Receive Date: 20170818
  Receipt Date: 20170925
  Transmission Date: 20171127
  Serious: Yes (Death)
  Sender: FDA-Public Use
  Company Number: JP-MALLINCKRODT-T201703467

PATIENT
  Age: 71 Year
  Sex: Male
  Weight: 48 kg

DRUGS (10)
  1. METHADONE [Suspect]
     Active Substance: METHADONE HYDROCHLORIDE
     Indication: CANCER PAIN
     Dosage: 30 MG (ONE TIME DOSE 10 MG)
     Route: 048
     Dates: start: 20140728, end: 20140804
  2. GASMOTIN [Concomitant]
     Active Substance: MOSAPRIDE CITRATE
     Indication: PRODUCT USED FOR UNKNOWN INDICATION
     Dosage: 15 MG, UNK
     Route: 048
     Dates: end: 20141016
  3. HYPEN [Concomitant]
     Active Substance: ETODOLAC
     Indication: ANALGESIC THERAPY
     Dosage: 400 MG, UNK
     Route: 048
     Dates: end: 20141016
  4. METHADONE [Suspect]
     Active Substance: METHADONE HYDROCHLORIDE
     Dosage: 40 MG, (ONE TIME DOSE 20 MG)
     Route: 048
     Dates: start: 20140826, end: 20140929
  5. MUCODYNE [Concomitant]
     Active Substance: CARBOCYSTEINE
     Indication: PRODUCT USED FOR UNKNOWN INDICATION
     Dosage: 750 MG
     Route: 048
     Dates: end: 20141016
  6. METHADONE [Suspect]
     Active Substance: METHADONE HYDROCHLORIDE
     Dosage: 45 MG, (ONE TIME DOSE 20 MG, 25 MG)
     Route: 048
     Dates: start: 20140930, end: 20141016
  7. MUCOSOLVAN [Concomitant]
     Active Substance: AMBROXOL HYDROCHLORIDE
     Indication: PRODUCT USED FOR UNKNOWN INDICATION
     Dosage: 45 MG,
     Route: 048
     Dates: end: 20141016
  8. METHADONE [Suspect]
     Active Substance: METHADONE HYDROCHLORIDE
     Dosage: 30 MG (ONE TIME DOSE 15 MG)
     Route: 048
     Dates: start: 20140805, end: 20140825
  9. OXINORM [Concomitant]
     Active Substance: OXYCODONE HYDROCHLORIDE
     Indication: ANALGESIC THERAPY
     Dosage: 15 MG, AS NEEDED
     Route: 048
     Dates: start: 20140727
  10. TAKEPRON [Concomitant]
     Active Substance: LANSOPRAZOLE
     Indication: PRODUCT USED FOR UNKNOWN INDICATION
     Dosage: 15 MG, UNK
     Route: 048
     Dates: end: 20141016

REACTIONS (4)
  - Pleural mesothelioma malignant [Fatal]
  - Constipation [Recovering/Resolving]
  - Dehydration [Not Recovered/Not Resolved]
  - Somnolence [Recovering/Resolving]

NARRATIVE: CASE EVENT DATE: 20140729
